FAERS Safety Report 23082279 (Version 2)
Quarter: 2025Q2

REPORT INFORMATION
  Report Type: Spontaneous
  Country: CA (occurrence: CA)
  Receive Date: 20231019
  Receipt Date: 20250624
  Transmission Date: 20250716
  Serious: Yes (Life-Threatening, Other)
  Sender: ORGANON
  Company Number: CA-ORGANON-O2310CAN002214

PATIENT
  Age: 33 Year
  Sex: Male

DRUGS (13)
  1. REMERON [Suspect]
     Active Substance: MIRTAZAPINE
     Indication: Depression
     Dosage: 60 MILLIGRAM, QD (1 EVERY 1 DAY)
     Route: 065
  2. REMERON [Suspect]
     Active Substance: MIRTAZAPINE
     Dosage: 30 MILLIGRAM, QD (1 EVERY 1 DAY)
     Route: 065
  3. ARIPIPRAZOLE [Suspect]
     Active Substance: ARIPIPRAZOLE
     Indication: Depression
     Dosage: 5 MILLIGRAM, QD (1 EVERY 1 DAY), (DOSAGE FORM NOT SPCIFIED)
     Route: 065
  4. BREXPIPRAZOLE [Suspect]
     Active Substance: BREXPIPRAZOLE
     Indication: Depression
     Route: 065
  5. BUPROPION [Suspect]
     Active Substance: BUPROPION
     Indication: Depression
     Route: 065
  6. KETAMINE [Suspect]
     Active Substance: KETAMINE
     Indication: Depression
     Route: 042
  7. LEVOMILNACIPRAN [Suspect]
     Active Substance: LEVOMILNACIPRAN
     Indication: Depression
     Route: 065
  8. LITHIUM [Suspect]
     Active Substance: LITHIUM
     Indication: Depression
     Dosage: 750 MILLIGRAM, QD (1 EVERY 1 DAY)
     Route: 065
  9. LITHIUM [Suspect]
     Active Substance: LITHIUM
     Route: 065
  10. MOCLOBEMIDE [Suspect]
     Active Substance: MOCLOBEMIDE
     Indication: Depression
     Route: 065
  11. OLANZAPINE [Suspect]
     Active Substance: OLANZAPINE
     Indication: Depression
     Dosage: 5 MILLIGRAM, QD (1 EVERY 1 DAY), (DOSAGE FORM NOT SPCIFIED)
     Route: 065
  12. SERTRALINE [Suspect]
     Active Substance: SERTRALINE HYDROCHLORIDE
     Indication: Depression
     Route: 065
  13. VENLAFAXINE HYDROCHLORIDE [Suspect]
     Active Substance: VENLAFAXINE HYDROCHLORIDE
     Indication: Depression
     Dosage: 300 MILLIGRAM, QD (1 EVERY 1 DAY)
     Route: 065

REACTIONS (1)
  - Therapy non-responder [Unknown]
